FAERS Safety Report 8579261-3 (Version None)
Quarter: 2012Q3

REPORT INFORMATION
  Report Type: 
  Country: None (occurrence: None)
  Receive Date: 20120808
  Receipt Date: 20120726
  Transmission Date: 20120928
  Serious: Yes (Hospitalization, Other)
  Sender: FDA-Public Use
  Company Number: IT-ROCHE-1096093

PATIENT

DRUGS (2)
  1. XELODA [Suspect]
     Indication: BREAST CANCER METASTATIC
  2. LAPATINIB [Suspect]
     Indication: BREAST CANCER METASTATIC

REACTIONS (11)
  - DIARRHOEA [None]
  - LIVER DISORDER [None]
  - THROMBOCYTOPENIA [None]
  - LEUKOPENIA [None]
  - MUCOSAL INFLAMMATION [None]
  - ANAEMIA [None]
  - PALMAR-PLANTAR ERYTHRODYSAESTHESIA SYNDROME [None]
  - NEUTROPENIA [None]
  - STOMATITIS [None]
  - FATIGUE [None]
  - RASH [None]
